FAERS Safety Report 19968358 (Version 1)
Quarter: 2021Q4

REPORT INFORMATION
  Report Type: Spontaneous
  Country: US (occurrence: US)
  Receive Date: 20211018
  Receipt Date: 20211018
  Transmission Date: 20220303
  Serious: No
  Sender: FDA-Public Use
  Company Number: None

PATIENT
  Age: 77 Year
  Sex: Male
  Weight: 101.5 kg

DRUGS (16)
  1. BARICITINIB [Suspect]
     Active Substance: BARICITINIB
     Indication: COVID-19
     Route: 048
     Dates: start: 20211016, end: 20211018
  2. REMDESIVIR [Suspect]
     Active Substance: REMDESIVIR
     Indication: COVID-19
     Route: 042
     Dates: start: 20211016, end: 20211016
  3. ASPIRIN [Concomitant]
     Active Substance: ASPIRIN
  4. atorvastatin 80 [Concomitant]
  5. BUMETANIDE [Concomitant]
     Active Substance: BUMETANIDE
  6. Phoslo 667 [Concomitant]
  7. CEFTRIAXONE [Concomitant]
     Active Substance: CEFTRIAXONE
     Dates: start: 20211016
  8. dexamethasone 6 [Concomitant]
     Dates: start: 20211016
  9. DOXAZOSIN [Concomitant]
     Active Substance: DOXAZOSIN MESYLATE
  10. FAMOTIDINE [Concomitant]
     Active Substance: FAMOTIDINE
  11. guaifenesin ER 600 [Concomitant]
     Dates: start: 20211016
  12. vitamin D3 5000 [Concomitant]
     Dates: start: 20211016
  13. WARFARIN [Concomitant]
     Active Substance: WARFARIN
  14. amlodipine 10 [Concomitant]
     Dates: end: 20211017
  15. metoprolol 75mg [Concomitant]
     Dates: end: 20211016
  16. remdesivir 200 [Concomitant]
     Dates: start: 20211016, end: 20211016

REACTIONS (1)
  - Bradycardia [None]

NARRATIVE: CASE EVENT DATE: 20211016
